FAERS Safety Report 16403622 (Version 1)
Quarter: 2019Q3

REPORT INFORMATION
  Report Type: Spontaneous
  Country: US (occurrence: US)
  Receive Date: 20190606
  Receipt Date: 20190606
  Transmission Date: 20191004
  Serious: Yes (Hospitalization)
  Sender: FDA-Public Use
  Company Number: None

PATIENT
  Age: 41 Year
  Sex: Female
  Weight: 83.7 kg

DRUGS (3)
  1. WELLBUTRIN [Concomitant]
     Active Substance: BUPROPION HYDROCHLORIDE
  2. LINZESS [Concomitant]
     Active Substance: LINACLOTIDE
  3. OTEZLA [Suspect]
     Active Substance: APREMILAST
     Indication: PSORIASIS
     Dates: start: 20190516, end: 20190524

REACTIONS (5)
  - Cholecystitis acute [None]
  - Diarrhoea [None]
  - Abdominal pain [None]
  - Vomiting [None]
  - Cholecystectomy [None]

NARRATIVE: CASE EVENT DATE: 20190530
